FAERS Safety Report 23808965 (Version 1)
Quarter: 2024Q2

REPORT INFORMATION
  Report Type: Spontaneous
  Country: US (occurrence: None)
  Receive Date: 20240501
  Receipt Date: 20240501
  Transmission Date: 20240715
  Serious: No
  Sender: FDA-Public Use
  Company Number: None

PATIENT
  Age: 64 Year
  Sex: Male

DRUGS (1)
  1. NIVESTYM [Suspect]
     Active Substance: FILGRASTIM-AAFI
     Indication: Neutropenia
     Dosage: OTHER QUANTITY : 480 MCG/0.8ML;?FREQUENCY : EVERY DAY BEFORE NOON;?
     Route: 058
     Dates: start: 202402

REACTIONS (2)
  - Back pain [None]
  - Arthralgia [None]

NARRATIVE: CASE EVENT DATE: 20240501
